FAERS Safety Report 23777336 (Version 1)
Quarter: 2024Q2

REPORT INFORMATION
  Report Type: Spontaneous
  Country: CH (occurrence: CH)
  Receive Date: 20240424
  Receipt Date: 20240424
  Transmission Date: 20240716
  Serious: Yes (Life-Threatening, Hospitalization, Other)
  Sender: FDA-Public Use
  Company Number: CH-ASTELLAS-2024EU003707

PATIENT
  Age: 60 Year
  Sex: Male
  Weight: 64 kg

DRUGS (21)
  1. PROGRAF [Interacting]
     Active Substance: TACROLIMUS
     Indication: Liver transplant
     Route: 048
  2. PROGRAF [Interacting]
     Active Substance: TACROLIMUS
     Dosage: 0.072 MG, UNKNOWN FREQ. (INFUSION OVER 2.5 H)
     Route: 042
  3. PROGRAF [Interacting]
     Active Substance: TACROLIMUS
     Dosage: 2 MG, TWICE DAILY ( ON ADMISSION DAY 25)
     Route: 065
  4. PROGRAF [Interacting]
     Active Substance: TACROLIMUS
     Dosage: 2 MG, ONCE DAILY (IN THE FIRST FOLLOW-UP VISIT)
     Route: 065
  5. RIFAMPIN [Interacting]
     Active Substance: RIFAMPIN
     Indication: Product used for unknown indication
     Route: 065
  6. RIFAMPIN [Interacting]
     Active Substance: RIFAMPIN
     Route: 065
  7. DIFLUCAN [Interacting]
     Active Substance: FLUCONAZOLE
     Indication: Product used for unknown indication
     Dosage: 200 MG, UNKNOWN FREQ. (SINGLE SHOT ON DAY 7 AT 06:49)
     Route: 065
  8. ASPIRIN [Concomitant]
     Active Substance: ASPIRIN
     Indication: Product used for unknown indication
     Route: 065
  9. DUPHALAC [Concomitant]
     Active Substance: LACTULOSE
     Indication: Product used for unknown indication
     Route: 065
  10. ELIQUIS [Concomitant]
     Active Substance: APIXABAN
     Indication: Product used for unknown indication
     Route: 065
  11. ROSUVASTATIN CALCIUM [Concomitant]
     Active Substance: ROSUVASTATIN CALCIUM
     Indication: Product used for unknown indication
     Dosage: 5 MG, ONCE DAILY (TILL DAY 6)
     Route: 065
  12. URSODIOL [Concomitant]
     Active Substance: URSODIOL
     Indication: Product used for unknown indication
     Route: 065
  13. KONAKION [Concomitant]
     Active Substance: PHYTONADIONE
     Indication: Product used for unknown indication
     Dosage: 10 MG/ML 10 MG, TWICE DAILY
     Route: 065
  14. KONAKION [Concomitant]
     Active Substance: PHYTONADIONE
     Dosage: 10 MG/ML 10 MG, TWICE DAILY
     Route: 065
  15. PANTOPRAZOLE SODIUM [Concomitant]
     Active Substance: PANTOPRAZOLE SODIUM
     Indication: Product used for unknown indication
     Route: 065
  16. VANCOCIN [Concomitant]
     Active Substance: VANCOMYCIN HYDROCHLORIDE
     Indication: Product used for unknown indication
     Route: 065
  17. BACTRIM [Concomitant]
     Active Substance: SULFAMETHOXAZOLE\TRIMETHOPRIM
     Indication: Product used for unknown indication
     Dosage: 860 MG, ONCE DAILY (THREE TIMES WEEKLY)
     Route: 065
  18. CANCIDAS [Concomitant]
     Active Substance: CASPOFUNGIN ACETATE
     Indication: Product used for unknown indication
     Route: 065
  19. VALCYTE [Concomitant]
     Active Substance: VALGANCICLOVIR HYDROCHLORIDE
     Indication: Product used for unknown indication
     Dosage: 450 MG, ONCE DAILY (EVERY OTHER DAY)
     Route: 065
  20. HEPARIN [Concomitant]
     Active Substance: HEPARIN SODIUM
     Indication: Product used for unknown indication
     Dosage: UNK UNK, UNKNOWN FREQ. (INFUSION OVER 24 H)
     Route: 065
  21. SOLU-CORTEF [Concomitant]
     Active Substance: HYDROCORTISONE SODIUM SUCCINATE
     Indication: Product used for unknown indication
     Route: 065

REACTIONS (11)
  - Toxicity to various agents [Unknown]
  - Neurotoxicity [Unknown]
  - Nephropathy toxic [Unknown]
  - Hepatotoxicity [Unknown]
  - Encephalopathy [Unknown]
  - Coma [Recovered/Resolved]
  - Infective aneurysm [Unknown]
  - Pseudomonas infection [Unknown]
  - Enterobacter infection [Unknown]
  - Drug interaction [Unknown]
  - Drug interaction [Unknown]
